FAERS Safety Report 9563637 (Version 1)
Quarter: 2013Q1

REPORT INFORMATION
  Report Type: Spontaneous
  Country: US (occurrence: None)
  Receive Date: 20120409
  Receipt Date: 20120409
  Transmission Date: 20140127
  Serious: Yes (Other)
  Sender: FDA-Public Use
  Company Number: 2011-346

PATIENT
  Age: 27 Year
  Sex: Female
  Weight: 75.9 kg

DRUGS (13)
  1. FAZACLO (CLOZAPINE, USP) ODT (ORAL DISINTEGRATING TABLET) [Suspect]
     Indication: SCHIZOPHRENIA, CATATONIC TYPE
     Route: 048
     Dates: start: 20091230
  2. FAZACLO (CLOZAPINE, USP) ODT (ORAL DISINTEGRATING TABLET) [Suspect]
     Indication: SCHIZOAFFECTIVE DISORDER
     Route: 048
     Dates: start: 20091230
  3. CARBATROL(CARBAMAZEPINE) [Concomitant]
  4. GABAPENTIN(GABAPENTIN) [Concomitant]
  5. ONE DAILY (ASCORBIC ACID, CYANOCOBALAMIN, ERGOCALCIFEROL, FOLIC ACID, NICOTINAMIDE, PYRIDOXINE HYDROCHLORIDE, RETINOL, RIBOFLAVIN, THIAMINE HYDROCHLORIDE, TOCOPHEROL) [Concomitant]
  6. NIASPAN(NICOTINIC ACID) [Concomitant]
  7. LAMICTAL(LAMOTRIGINE) [Concomitant]
  8. DOCUSATE SODIUM (DOCUSATE SODIUM) [Concomitant]
  9. LORATIDINE [Concomitant]
  10. TRILEPTAL(OXCARBAZEPINE) [Concomitant]
  11. OMEPRAZOLE(OMEPRAZOLE) [Concomitant]
  12. POTASSIUM CHLORIDE(POTASSIUM CHLORIDE) [Concomitant]
  13. BISACODYL(BISACODYL) [Concomitant]

REACTIONS (1)
  - Convulsion [None]
